FAERS Safety Report 6828356-0 (Version None)
Quarter: 2010Q3

REPORT INFORMATION
  Report Type: 
  Country: None (occurrence: None)
  Receive Date: 20100709
  Receipt Date: 20070206
  Transmission Date: 20110219
  Serious: No
  Sender: FDA-Public Use
  Company Number: US-PFIZER INC-2007010742

PATIENT
  Age: 35 Year
  Sex: Female

DRUGS (4)
  1. CHANTIX [Suspect]
     Indication: SMOKING CESSATION THERAPY
     Dates: start: 20070202, end: 20070201
  2. PROZAC [Concomitant]
     Dates: start: 20060901
  3. DOXYCYCLINE [Concomitant]
     Dates: start: 20070202
  4. ZYBAN [Concomitant]
     Indication: SMOKING CESSATION THERAPY

REACTIONS (2)
  - HEADACHE [None]
  - NAUSEA [None]
